FAERS Safety Report 8838384 (Version 1)
Quarter: 2012Q4

REPORT INFORMATION
  Report Type: 
  Country: BR (occurrence: BR)
  Receive Date: 20121012
  Receipt Date: 20121012
  Transmission Date: 20130627
  Serious: Yes (Other)
  Sender: FDA-Public Use
  Company Number: BR-PFIZER INC-2012251797

PATIENT
  Age: 22 Year
  Sex: Male

DRUGS (1)
  1. ZITROMAX [Suspect]
     Indication: PROPHYLAXIS
     Dosage: 250 mg, 3x/week
     Route: 048

REACTIONS (1)
  - Diabetes mellitus [Unknown]
